FAERS Safety Report 4868254-5 (Version None)
Quarter: 2005Q4

REPORT INFORMATION
  Report Type: 
  Country: None (occurrence: None)
  Receive Date: 20051229
  Receipt Date: 20051216
  Transmission Date: 20060501
  Serious: Yes (Other)
  Sender: FDA-Public Use
  Company Number: US-SANOFI-SYNTHELABO-A03200504363

PATIENT
  Sex: Female
  Weight: 58.96 kg

DRUGS (2)
  1. PLAVIX [Suspect]
     Indication: CORONARY ARTERIAL STENT INSERTION
     Route: 048
     Dates: start: 20050601, end: 20051101
  2. TRAVATAN [Concomitant]
     Route: 047
     Dates: start: 20040101

REACTIONS (1)
  - SKIN EXFOLIATION [None]
